FAERS Safety Report 10637816 (Version 1)
Quarter: 2014Q4

REPORT INFORMATION
  Report Type: Spontaneous
  Country: US (occurrence: None)
  Receive Date: 20141121
  Receipt Date: 20141121
  Transmission Date: 20150529
  Serious: No
  Sender: FDA-Public Use
  Company Number: 163-10004-14083559

PATIENT
  Age: 48 Year
  Sex: Female
  Weight: 75.75 kg

DRUGS (1)
  1. OTEZLA [Suspect]
     Active Substance: APREMILAST
     Indication: PSORIATIC ARTHROPATHY
     Dosage: 30 MG, 1 IN 1 D,  PO
     Route: 048

REACTIONS (2)
  - Diarrhoea [None]
  - Migraine [None]
